FAERS Safety Report 14732501 (Version 5)
Quarter: 2018Q2

REPORT INFORMATION
  Report Type: Spontaneous
  Country: DK (occurrence: DK)
  Receive Date: 20180409
  Receipt Date: 20180628
  Transmission Date: 20180711
  Serious: Yes (Hospitalization)
  Sender: FDA-Public Use
  Company Number: DK-SUN PHARMACEUTICAL INDUSTRIES LTD-2018RR-169400

PATIENT
  Age: 81 Year
  Sex: Female
  Weight: 50 kg

DRUGS (17)
  1. ALIMTA [Suspect]
     Active Substance: PEMETREXED DISODIUM
     Indication: CHRONIC LYMPHOCYTIC LEUKAEMIA
     Dosage: UNK ()
     Route: 065
  2. CYCLOPHOSPHAMIDE. [Suspect]
     Active Substance: CYCLOPHOSPHAMIDE
     Indication: CHRONIC LYMPHOCYTIC LEUKAEMIA
     Dosage: UNK ()
     Route: 065
  3. XGEVA [Suspect]
     Active Substance: DENOSUMAB
     Indication: CHRONIC LYMPHOCYTIC LEUKAEMIA
     Dosage: UNK ()
     Route: 065
  4. CARBOPLATIN. [Suspect]
     Active Substance: CARBOPLATIN
     Indication: CHRONIC LYMPHOCYTIC LEUKAEMIA
     Dosage: UNK ()
     Route: 065
  5. CAPECITABINE. [Suspect]
     Active Substance: CAPECITABINE
     Indication: CHRONIC LYMPHOCYTIC LEUKAEMIA
     Dosage: UNK ()
     Route: 065
  6. FOSAMAX [Suspect]
     Active Substance: ALENDRONATE SODIUM
     Indication: CHRONIC LYMPHOCYTIC LEUKAEMIA
     Dosage: 70 MG, QWK
     Route: 048
  7. TRASTUZUMAB. [Suspect]
     Active Substance: TRASTUZUMAB
     Indication: METASTASES TO LUNG
     Dosage: UNK ()
     Route: 065
  8. XGEVA [Suspect]
     Active Substance: DENOSUMAB
     Indication: METASTASES TO BONE
     Dosage: 120 MG, UNK
     Route: 058
  9. CISPLATIN. [Suspect]
     Active Substance: CISPLATIN
     Indication: CHRONIC LYMPHOCYTIC LEUKAEMIA
     Dosage: UNK ()
     Route: 065
  10. GLIVEC [Suspect]
     Active Substance: IMATINIB MESYLATE
     Indication: CHRONIC LYMPHOCYTIC LEUKAEMIA
     Dosage: 100 MG - 400 MG, TABLET X 3 OR 1 TABLET X 1 ()
     Route: 048
     Dates: start: 20141028
  11. GLIVEC [Suspect]
     Active Substance: IMATINIB MESYLATE
     Indication: CHRONIC MYELOID LEUKAEMIA
     Dosage: 100 MG - 400 MG, TABLET X 3 OR 1 TABLET X 1 ()
     Route: 048
     Dates: start: 20141028
  12. ALENDRONAT BLUEFISH [Suspect]
     Active Substance: ALENDRONATE SODIUM
     Indication: OSTEOPOROSIS
     Dosage: 70 MG, QWK
     Route: 048
  13. VINORELBINE [Suspect]
     Active Substance: VINORELBINE\VINORELBINE TARTRATE
     Indication: CHRONIC LYMPHOCYTIC LEUKAEMIA
     Dosage: UNK ()
     Route: 065
  14. HERCEPTIN [Suspect]
     Active Substance: TRASTUZUMAB
     Indication: CHRONIC LYMPHOCYTIC LEUKAEMIA
     Dosage: UNK ()
     Route: 065
  15. TEMOZOLOMIDE. [Suspect]
     Active Substance: TEMOZOLOMIDE
     Indication: CHRONIC LYMPHOCYTIC LEUKAEMIA
     Dosage: UNK ()
     Route: 065
  16. IRINOTECAN [Suspect]
     Active Substance: IRINOTECAN
     Indication: CHRONIC LYMPHOCYTIC LEUKAEMIA
     Dosage: UNK ()
     Route: 065
  17. THALIDOMIDE [Suspect]
     Active Substance: THALIDOMIDE
     Indication: CHRONIC LYMPHOCYTIC LEUKAEMIA
     Dosage: UNK ()
     Route: 065

REACTIONS (2)
  - Osteonecrosis of jaw [Recovered/Resolved]
  - Jaw operation [Unknown]

NARRATIVE: CASE EVENT DATE: 20151215
